FAERS Safety Report 5611910-1 (Version None)
Quarter: 2008Q1

REPORT INFORMATION
  Report Type: 
  Country: None (occurrence: None)
  Receive Date: 20080131
  Receipt Date: 20080131
  Transmission Date: 20080703
  Serious: Yes (Life-Threatening, Hospitalization)
  Sender: FDA-Public Use
  Company Number: None

PATIENT
  Age: 51 Year
  Sex: Female
  Weight: 71.2147 kg

DRUGS (1)
  1. REGLAN [Suspect]
     Indication: GALLBLADDER DISORDER
     Dosage: 1 BEFORE EACH MEAL AND BEDTIME
     Dates: start: 20080124, end: 20080126

REACTIONS (7)
  - BLOOD PRESSURE INCREASED [None]
  - DYSARTHRIA [None]
  - FACIAL PALSY [None]
  - MIGRAINE [None]
  - PALLOR [None]
  - THROAT TIGHTNESS [None]
  - YAWNING [None]
